FAERS Safety Report 18254098 (Version 7)
Quarter: 2021Q1

REPORT INFORMATION
  Report Type: Spontaneous
  Country: JP (occurrence: JP)
  Receive Date: 20200910
  Receipt Date: 20210207
  Transmission Date: 20210419
  Serious: Yes (Other)
  Sender: FDA-Public Use
  Company Number: JP-JNJFOC-20200901401

PATIENT
  Age: 55 Year
  Sex: Female

DRUGS (1)
  1. NEOPERIDOL [Suspect]
     Active Substance: HALOPERIDOL
     Indication: SCHIZOPHRENIA
     Dosage: RIGHT UPPER ARM OR LEFT UPPER ARM PER 4 WEEKS, NEOPERIDOL
     Route: 030

REACTIONS (2)
  - Administration site pain [Recovering/Resolving]
  - Paralysis [Recovering/Resolving]

NARRATIVE: CASE EVENT DATE: 20200827
